FAERS Safety Report 7766983-7 (Version None)
Quarter: 2011Q3

REPORT INFORMATION
  Report Type: 
  Country: None (occurrence: None)
  Receive Date: 20110922
  Receipt Date: 20110919
  Transmission Date: 20111222
  Serious: Yes (Life-Threatening, Hospitalization, Disabling)
  Sender: FDA-Public Use
  Company Number: PHHY2011DE58875

PATIENT
  Sex: Female

DRUGS (1)
  1. GILENYA [Suspect]
     Indication: MULTIPLE SCLEROSIS RELAPSE
     Dosage: 0.5 MG, DAILY
     Route: 048
     Dates: start: 20110610, end: 20110614

REACTIONS (16)
  - CONVULSION [None]
  - DYSKINESIA [None]
  - HEMIPARESIS [None]
  - LOSS OF CONSCIOUSNESS [None]
  - PARTIAL SEIZURES WITH SECONDARY GENERALISATION [None]
  - DISORIENTATION [None]
  - WHITE BLOOD CELL COUNT INCREASED [None]
  - COMPLEX PARTIAL SEIZURES [None]
  - MUSCLE SPASMS [None]
  - CONFUSIONAL STATE [None]
  - MULTIPLE SCLEROSIS RELAPSE [None]
  - RED BLOOD CELL COUNT DECREASED [None]
  - SOMNOLENCE [None]
  - GRAND MAL CONVULSION [None]
  - MUSCLE RIGIDITY [None]
  - LYMPHOCYTE COUNT DECREASED [None]
